FAERS Safety Report 22204295 (Version 1)
Quarter: 2023Q2

REPORT INFORMATION
  Report Type: Report from Study
  Country: AE (occurrence: AE)
  Receive Date: 20230412
  Receipt Date: 20230412
  Transmission Date: 20230722
  Serious: Yes (Hospitalization)
  Sender: FDA-Public Use
  Company Number: AE-BIOGEN-2023BI01198321

PATIENT
  Age: 9 Year
  Sex: Female

DRUGS (1)
  1. SPINRAZA [Suspect]
     Active Substance: NUSINERSEN
     Indication: Spinal muscular atrophy
     Dosage: INITIATE SPINRAZA TREATMENT WITH INITIATE WITH 4 LOADING DOSES; THE FIRST THREE LOADING DOSES SHO...
     Route: 050
     Dates: start: 20220921

REACTIONS (1)
  - Infection [Not Recovered/Not Resolved]

NARRATIVE: CASE EVENT DATE: 20230403
